FAERS Safety Report 10373651 (Version 1)
Quarter: 2014Q1

REPORT INFORMATION
  Report Type: Spontaneous
  Country: US (occurrence: None)
  Receive Date: 20140306
  Receipt Date: 20140306
  Transmission Date: 20141002
  Serious: Yes (Other)
  Sender: FDA-Public Use
  Company Number: 163-21880-13033370

PATIENT
  Age: 70 Year
  Sex: Female
  Weight: 75 kg

DRUGS (2)
  1. REVLIMID (LENALIDOMIDE) (10 MILLIGRAM, CAPSULES) [Suspect]
     Indication: PLASMA CELL MYELOMA
     Dosage: 21IN 28 D, PO
     Route: 048
     Dates: start: 20120622
  2. LACTAID (LACTASE) [Concomitant]

REACTIONS (4)
  - Periorbital contusion [None]
  - Fall [None]
  - Face injury [None]
  - Diarrhoea [None]
